FAERS Safety Report 24714189 (Version 1)
Quarter: 2024Q4

REPORT INFORMATION
  Report Type: Spontaneous
  Country: US (occurrence: US)
  Receive Date: 20241209
  Receipt Date: 20241209
  Transmission Date: 20250115
  Serious: No
  Sender: REGENERON
  Company Number: US-REGENERON PHARMACEUTICALS, INC.-2024-161465

PATIENT
  Age: 75 Year
  Sex: Female

DRUGS (5)
  1. EYLEA [Suspect]
     Active Substance: AFLIBERCEPT
     Indication: Diabetic retinal oedema
     Dosage: UNK, Q4W, INTO THE RIGHT EYE (PATIENT ON TREATMENT IN BOTH EYES), FORMULATION: UNKNOWN
  2. EYLEA [Suspect]
     Active Substance: AFLIBERCEPT
     Dosage: UNK, Q6W, INTO THE RIGHT EYE, FORMULATION: UNKNOWN
  3. EYLEA [Suspect]
     Active Substance: AFLIBERCEPT
     Dosage: UNK, Q8W, INTO THE RIGHT EYE, FORMULATION: UNKNOWN
  4. EYLEA [Suspect]
     Active Substance: AFLIBERCEPT
     Dosage: UNK, Q12W, INTO THE RIGHT EYE, FORMULATION: UNKNOWN
  5. EYLEA [Suspect]
     Active Substance: AFLIBERCEPT
     Dosage: UNK, INTO THE LEFT EYE, FORMULATION: UNKNOWN

REACTIONS (2)
  - Diabetic retinal oedema [Unknown]
  - Vision blurred [Recovered/Resolved]
